FAERS Safety Report 7266918-X (Version None)
Quarter: 2011Q1

REPORT INFORMATION
  Report Type: 
  Country: None (occurrence: None)
  Receive Date: 20110121
  Receipt Date: 20110114
  Transmission Date: 20110831
  Serious: Yes (Hospitalization)
  Sender: FDA-Public Use
  Company Number: 2010EN000356

PATIENT
  Age: 13 Year
  Sex: Female
  Weight: 44.6 kg

DRUGS (23)
  1. METHOTREXATE [Suspect]
     Indication: ACUTE LYMPHOCYTIC LEUKAEMIA
     Dosage: 15 MG; QW; INTH 60 MG; QW;  INTH
     Route: 055
     Dates: start: 20101220, end: 20110110
  2. METHOTREXATE [Suspect]
     Indication: ACUTE LYMPHOCYTIC LEUKAEMIA
     Dosage: 15 MG; QW; INTH 60 MG; QW;  INTH
     Route: 055
     Dates: start: 20101119, end: 20101119
  3. ALUMINUM HYDROXIDE GEL [Concomitant]
  4. DIPHENHYDRAMINE [Concomitant]
  5. METOCLOPRAMIDE [Concomitant]
  6. ZOFRAN [Concomitant]
  7. CYCLOPHOSPHAMIDE [Suspect]
     Indication: ACUTE LYMPHOCYTIC LEUKAEMIA
     Dosage: 1350 MG; X1; IV
     Route: 042
     Dates: start: 20101220, end: 20101220
  8. PREDNISONE [Concomitant]
  9. CYTARABINE [Concomitant]
  10. BACTRIM [Concomitant]
  11. MORPHINE [Concomitant]
  12. RANITIDINE [Concomitant]
  13. VINCRISTINE [Suspect]
     Indication: ACUTE LYMPHOCYTIC LEUKAEMIA
     Dosage: 6 MG; QW; IV, 4 MG; QW; IV
     Route: 042
     Dates: start: 20110103, end: 20110110
  14. VINCRISTINE [Suspect]
     Indication: ACUTE LYMPHOCYTIC LEUKAEMIA
     Dosage: 6 MG; QW; IV, 4 MG; QW; IV
     Route: 042
     Dates: start: 20101112, end: 20101126
  15. MERCAPTOPURINE [Suspect]
     Indication: ACUTE LYMPHOCYTIC LEUKAEMIA
     Dosage: 1150 MG;QD; PO
     Route: 048
     Dates: start: 20101220, end: 20110102
  16. CEFEPIME [Concomitant]
  17. CHLORHEXIDINE GLUCONATE [Concomitant]
  18. COLACE [Concomitant]
  19. LORAZEPAM [Concomitant]
  20. ONCASPAR [Suspect]
     Indication: ACUTE LYMPHOCYTIC LEUKAEMIA
     Dosage: 3375 IU; X1; IV
     Route: 042
     Dates: start: 20110103, end: 20110103
  21. DAUNORUBICIN [Suspect]
     Indication: ACUTE LYMPHOCYTIC LEUKAEMIA
     Dosage: 102 MG; QW; IV
     Route: 042
     Dates: start: 20101112, end: 20101126
  22. EZN-2285 (SC-PEG E. COLI L-ASPARAGINASE) [Suspect]
     Indication: ACUTE LYMPHOCYTIC LEUKAEMIA
     Dosage: 2877 IU; X1; IV
     Route: 042
     Dates: start: 20101115, end: 20101115
  23. MIRALAX [Concomitant]

REACTIONS (4)
  - HYPERBILIRUBINAEMIA [None]
  - BACK PAIN [None]
  - HYPERTENSION [None]
  - PROTEINURIA [None]
